FAERS Safety Report 7811133-1 (Version None)
Quarter: 2011Q4

REPORT INFORMATION
  Report Type: 
  Country: None (occurrence: None)
  Receive Date: 20111013
  Receipt Date: 20111007
  Transmission Date: 20120403
  Serious: Yes (Death)
  Sender: FDA-Public Use
  Company Number: SK-CELGENEUS-260-21880-09091818

PATIENT
  Age: 46 Year
  Sex: Female

DRUGS (3)
  1. HEPARIN [Concomitant]
     Indication: PROPHYLAXIS
     Route: 065
  2. REVLIMID [Suspect]
     Indication: MULTIPLE MYELOMA
     Dosage: 10 MILLIGRAM
     Route: 048
     Dates: start: 20090501
  3. CORTICOSTEROIDS [Concomitant]
     Indication: MULTIPLE MYELOMA
     Route: 065
     Dates: start: 20090101

REACTIONS (4)
  - INFECTION [None]
  - MULTIPLE MYELOMA [None]
  - FATIGUE [None]
  - FEBRILE NEUTROPENIA [None]
